FAERS Safety Report 20439257 (Version 1)
Quarter: 2022Q1

REPORT INFORMATION
  Report Type: Other
  Country: CA (occurrence: CA)
  Receive Date: 20220207
  Receipt Date: 20220207
  Transmission Date: 20220423
  Serious: Yes (Hospitalization)
  Sender: FDA-Public Use
  Company Number: CA-APOTEX-2022AP002822

PATIENT
  Sex: Female

DRUGS (2)
  1. DASATINIB [Suspect]
     Active Substance: DASATINIB
     Indication: Philadelphia positive chronic myeloid leukaemia
     Dosage: 70 MILLIGRAM, QD
     Route: 065
  2. IMATINIB [Suspect]
     Active Substance: IMATINIB
     Indication: Philadelphia positive chronic myeloid leukaemia
     Dosage: 400 MILLIGRAM, QD
     Route: 065

REACTIONS (4)
  - Cytogenetic analysis abnormal [Unknown]
  - Off label use [Unknown]
  - Pneumonitis [Unknown]
  - Therapeutic response decreased [Unknown]
